FAERS Safety Report 24210146 (Version 1)
Quarter: 2024Q3

REPORT INFORMATION
  Report Type: Spontaneous
  Country: US (occurrence: US)
  Receive Date: 20240814
  Receipt Date: 20240814
  Transmission Date: 20241017
  Serious: No
  Sender: CSL BEHRING
  Company Number: US-BEH-2024177086

PATIENT
  Age: 57 Year
  Sex: Male

DRUGS (2)
  1. HIZENTRA [Suspect]
     Active Substance: HUMAN IMMUNOGLOBULIN G
     Dosage: 40 G
     Route: 065
  2. HIZENTRA [Suspect]
     Active Substance: HUMAN IMMUNOGLOBULIN G
     Dosage: 40 G IN 2 SEPARATE DAYS WEEKLY
     Route: 065

REACTIONS (1)
  - Abdominal distension [Unknown]
